FAERS Safety Report 6357278-7 (Version None)
Quarter: 2009Q3

REPORT INFORMATION
  Report Type: 
  Country: None (occurrence: None)
  Receive Date: 20090916
  Receipt Date: 20090904
  Transmission Date: 20100115
  Serious: No
  Sender: FDA-Public Use
  Company Number: PHEH2009US07190

PATIENT
  Sex: Female

DRUGS (7)
  1. TASIGNA [Suspect]
     Indication: CHRONIC MYELOID LEUKAEMIA
     Dosage: 400 MG, Q12H
     Route: 048
     Dates: start: 20090201
  2. FUROSEMIDE [Concomitant]
     Dosage: 40 MG, QD
     Route: 048
  3. FLUOXETINE [Concomitant]
     Dosage: 20 MG, QD
     Route: 048
  4. LANTUS [Concomitant]
     Dosage: 17 U, QD
     Route: 058
  5. COUMADIN [Concomitant]
     Dosage: 5 MG, M,W,F / 4 MG, TUE, THUR, SAT, SUN
     Route: 048
  6. ASPIRIN [Concomitant]
     Dosage: 81 MG, QD
     Route: 048
  7. SPIRONOLACTONE [Concomitant]
     Dosage: 1/2 TABLET, DAILY
     Route: 048

REACTIONS (1)
  - WRONG TECHNIQUE IN DRUG USAGE PROCESS [None]
